FAERS Safety Report 4457453-2 (Version None)
Quarter: 2004Q3

REPORT INFORMATION
  Report Type: 
  Country: None (occurrence: None)
  Receive Date: 20040922
  Receipt Date: 20040913
  Transmission Date: 20050211
  Serious: Yes (Hospitalization)
  Sender: FDA-Public Use
  Company Number: 2004S1000184

PATIENT
  Age: 52 Year
  Sex: Male
  Weight: 78 kg

DRUGS (6)
  1. CUBICIN [Suspect]
     Indication: OSTEOMYELITIS
     Dosage: 500 MG; Q24H; IV
     Route: 042
     Dates: start: 20040820, end: 20040829
  2. SIMVASTATIN [Concomitant]
  3. PIROXICAM [Concomitant]
  4. DIPHENHYDRAMINE HCL [Concomitant]
  5. ACETAMINOPHEN [Concomitant]
  6. VICODIN [Concomitant]

REACTIONS (6)
  - ALANINE AMINOTRANSFERASE INCREASED [None]
  - ASPARTATE AMINOTRANSFERASE INCREASED [None]
  - ASTHENIA [None]
  - BLOOD ALKALINE PHOSPHATASE INCREASED [None]
  - BLOOD LACTATE DEHYDROGENASE INCREASED [None]
  - RHABDOMYOLYSIS [None]
